FAERS Safety Report 8103827-8 (Version None)
Quarter: 2012Q1

REPORT INFORMATION
  Report Type: 
  Country: None (occurrence: None)
  Receive Date: 20120201
  Receipt Date: 20120120
  Transmission Date: 20120608
  Serious: Yes (Life-Threatening, Hospitalization)
  Sender: FDA-Public Use
  Company Number: AT-ACTELION-A-CH2012-60072

PATIENT
  Age: 3 Year
  Sex: Male
  Weight: 9.6 kg

DRUGS (2)
  1. TRACLEER [Suspect]
     Dosage: 20 MG, BID
     Route: 048
     Dates: start: 20111201, end: 20111230
  2. TRACLEER [Suspect]
     Indication: PULMONARY HYPERTENSION
     Dosage: 10 MG, BID
     Route: 048
     Dates: start: 20110905, end: 20111201

REACTIONS (2)
  - PULMONARY VENO-OCCLUSIVE DISEASE [None]
  - ACUTE RESPIRATORY DISTRESS SYNDROME [None]
